FAERS Safety Report 11309981 (Version 2)
Quarter: 2015Q3

REPORT INFORMATION
  Report Type: Report from Study
  Country: KR (occurrence: KR)
  Receive Date: 20150724
  Receipt Date: 20150811
  Transmission Date: 20151125
  Serious: Yes (Hospitalization)
  Sender: FDA-Public Use
  Company Number: KR-BAXTER-2015BAX039656

PATIENT
  Age: 55 Year
  Sex: Female
  Weight: 74 kg

DRUGS (4)
  1. EXTRANEAL [Suspect]
     Active Substance: CALCIUM CHLORIDE\ICODEXTRIN\MAGNESIUM CHLORIDE\SODIUM CHLORIDE\SODIUM LACTATE
     Indication: CHRONIC KIDNEY DISEASE
     Dosage: 1.5 OR 2 LITERS
     Route: 033
     Dates: start: 20150702
  2. PHYSIONEAL 1.5% [Suspect]
     Active Substance: CALCIUM CHLORIDE\DEXTROSE\MAGNESIUM CHLORIDE\SODIUM CHLORIDE SOLUTION
     Indication: CHRONIC KIDNEY DISEASE
     Route: 033
     Dates: start: 20150702
  3. PHYSIONEAL 2.5% [Suspect]
     Active Substance: CALCIUM CHLORIDE\DEXTROSE\MAGNESIUM CHLORIDE\SODIUM CHLORIDE SOLUTION
     Indication: CHRONIC KIDNEY DISEASE
     Route: 033
     Dates: start: 20150702
  4. NEURONTIN [Suspect]
     Active Substance: GABAPENTIN
     Indication: PARAESTHESIA
     Route: 048
     Dates: start: 20150708, end: 20150713

REACTIONS (1)
  - Intervertebral disc disorder [Unknown]

NARRATIVE: CASE EVENT DATE: 20150708
